FAERS Safety Report 4368822-3 (Version None)
Quarter: 2004Q2

REPORT INFORMATION
  Report Type: 
  Country: None (occurrence: None)
  Receive Date: 20040528
  Receipt Date: 20040519
  Transmission Date: 20050107
  Serious: No
  Sender: FDA-Public Use
  Company Number: 04P-163-0261430-00

PATIENT
  Age: 33 Year
  Sex: Female

DRUGS (2)
  1. KALETRA [Suspect]
     Indication: HIV INFECTION
     Dosage: 8 CAPSULE, 1 IN 1 D, PER ORAL
     Route: 048
  2. NEVIRAPINE [Concomitant]

REACTIONS (2)
  - ABORTION SPONTANEOUS [None]
  - DRUG EXPOSURE DURING PREGNANCY [None]
